FAERS Safety Report 9181003 (Version 2)
Quarter: 2013Q2

REPORT INFORMATION
  Report Type: Spontaneous
  Country: US (occurrence: None)
  Receive Date: 20120531
  Receipt Date: 20130130
  Transmission Date: 20140414
  Serious: Yes (Hospitalization, Other)
  Sender: FDA-Public Use
  Company Number: US201201008019

PATIENT
  Sex: Male

DRUGS (14)
  1. BYETTA [Suspect]
  2. TIMOLOL MALEATE (TIMOLOL MALEATE) [Concomitant]
  3. ALPHAGAN (BRIMONIDINE TARTRATE) [Concomitant]
  4. AVANDAMET (METFORMIN HYDROCHLORIDE, ROSIGLITAZONE MALEATE) [Concomitant]
  5. ENALAPRIL (ENALAPRIL) [Concomitant]
  6. PLAVIX (CLOPIDOGREL BISULFATE) [Concomitant]
  7. SYNTHROID (LEVOTHYROXINE SODIUM) [Concomitant]
  8. CRESTOR (ROSUVASTATIN CALCIUM) [Concomitant]
  9. NORVASC (AMLODIPINE BESILATE) [Concomitant]
  10. VITAMIN C (ASCORBIC ACID) [Concomitant]
  11. ASPIRIN (ACETYLSALICYLIC ACID) [Concomitant]
  12. AMOXICILLIN (AMOXICILLIN) [Concomitant]
  13. PREVACID (LANSOPRAZOLE) [Concomitant]
  14. BIAXIN (CLARITHROMYCIN) [Concomitant]

REACTIONS (1)
  - Pancreatitis acute [None]
